FAERS Safety Report 24279144 (Version 2)
Quarter: 2024Q3

REPORT INFORMATION
  Report Type: Spontaneous
  Country: CN (occurrence: CN)
  Receive Date: 20240903
  Receipt Date: 20240906
  Transmission Date: 20241017
  Serious: Yes (Hospitalization)
  Sender: DAIICHI
  Company Number: CN-DSJP-DSJ-2024-142307

PATIENT
  Age: 72 Year
  Sex: Female
  Weight: 53 kg

DRUGS (2)
  1. EDOXABAN [Suspect]
     Active Substance: EDOXABAN
     Indication: Atrial fibrillation
     Dosage: 13 DF (TABLET), QD
     Route: 048
     Dates: start: 20240821, end: 20240821
  2. EDOXABAN [Suspect]
     Active Substance: EDOXABAN
     Indication: Atrial flutter

REACTIONS (6)
  - Drug abuse [Recovering/Resolving]
  - Haemorrhage subcutaneous [Unknown]
  - Abdominal discomfort [Unknown]
  - Diarrhoea [Unknown]
  - Decreased appetite [Unknown]
  - Gingival bleeding [Unknown]

NARRATIVE: CASE EVENT DATE: 20240821
